FAERS Safety Report 23336056 (Version 1)
Quarter: 2023Q4

REPORT INFORMATION
  Report Type: Spontaneous
  Country: AG (occurrence: AG)
  Receive Date: 20231225
  Receipt Date: 20231225
  Transmission Date: 20240109
  Serious: Yes (Other)
  Sender: FDA-Public Use
  Company Number: AG-002147023-NVSC2023AG271581

PATIENT
  Sex: Female

DRUGS (3)
  1. SANDOSTATIN LAR DEPOT [Suspect]
     Active Substance: OCTREOTIDE ACETATE
     Indication: Neuroendocrine cancer of the prostate metastatic
     Dosage: 30 MG, QMO
     Route: 065
     Dates: start: 202101
  2. SANDOSTATIN LAR DEPOT [Suspect]
     Active Substance: OCTREOTIDE ACETATE
  3. SANDOSTATIN LAR DEPOT [Suspect]
     Active Substance: OCTREOTIDE ACETATE

REACTIONS (8)
  - Decreased immune responsiveness [Unknown]
  - Neoplasm progression [Unknown]
  - Depression [Unknown]
  - Influenza [Unknown]
  - Dengue fever [Unknown]
  - Anxiety [Unknown]
  - Crying [Unknown]
  - Cytogenetic abnormality [Unknown]

NARRATIVE: CASE EVENT DATE: 20210101
